FAERS Safety Report 9804119 (Version 2)
Quarter: 2014Q1

REPORT INFORMATION
  Report Type: Spontaneous
  Country: FR (occurrence: FR)
  Receive Date: 20140108
  Receipt Date: 20140210
  Transmission Date: 20141002
  Serious: Yes (Hospitalization)
  Sender: FDA-Public Use
  Company Number: FR-PFIZER INC-2014001496

PATIENT
  Age: 75 Year
  Sex: Female
  Weight: 83 kg

DRUGS (4)
  1. TRIFLUCAN [Suspect]
     Indication: URINARY TRACT INFECTION
     Dosage: 1500 MG, 1X/DAY
     Route: 048
     Dates: start: 20130612, end: 20130625
  2. MODOPAR [Concomitant]
     Indication: PARKINSON^S DISEASE
     Dosage: 125 MG, 7X/DAY
     Route: 048
  3. SIFROL [Concomitant]
     Indication: PARKINSON^S DISEASE
     Dosage: 1.05 MG, DAILY
     Route: 048
  4. PYOSTACINE [Concomitant]
     Indication: URINARY TRACT INFECTION
     Dosage: UNK
     Route: 048
     Dates: start: 20130612, end: 20130625

REACTIONS (7)
  - Incorrect dose administered [Recovered/Resolved]
  - Hypercalcaemia [Recovered/Resolved]
  - Abdominal pain [Recovered/Resolved]
  - Electrocardiogram QT prolonged [Unknown]
  - Parkinson^s disease [Unknown]
  - Bundle branch block right [Unknown]
  - Somnolence [Unknown]
